FAERS Safety Report 9681992 (Version 6)
Quarter: 2015Q3

REPORT INFORMATION
  Report Type: Spontaneous
  Country: US (occurrence: US)
  Receive Date: 20131111
  Receipt Date: 20150820
  Transmission Date: 20151125
  Serious: Yes (Life-Threatening, Congenital Anomaly, Other)
  Sender: FDA-Public Use
  Company Number: US-ABBVIE-13P-163-1154275-00

PATIENT
  Sex: Male

DRUGS (4)
  1. DEPAKOTE [Suspect]
     Active Substance: DIVALPROEX SODIUM
     Indication: PATERNAL DRUGS AFFECTING FOETUS
     Route: 050
  2. DEPAKENE [Suspect]
     Active Substance: VALPROIC ACID
     Route: 050
  3. DEPAKOTE [Suspect]
     Active Substance: DIVALPROEX SODIUM
     Route: 064
  4. DEPAKENE [Suspect]
     Active Substance: VALPROIC ACID
     Indication: PATERNAL DRUGS AFFECTING FOETUS
     Route: 064

REACTIONS (10)
  - Apparent life threatening event [Recovered/Resolved]
  - Foetal exposure during pregnancy [Unknown]
  - Tremor neonatal [Unknown]
  - Neonatal respiratory distress syndrome [Unknown]
  - Gastrooesophageal reflux disease [Unknown]
  - Paternal drugs affecting foetus [Unknown]
  - Foetal anticonvulsant syndrome [Unknown]
  - Headache [Unknown]
  - Apgar score low [Unknown]
  - Pollakiuria [Unknown]

NARRATIVE: CASE EVENT DATE: 19940728
